FAERS Safety Report 16683003 (Version 2)
Quarter: 2019Q3

REPORT INFORMATION
  Report Type: Spontaneous
  Country: GB (occurrence: GB)
  Receive Date: 20190808
  Receipt Date: 20190910
  Transmission Date: 20191004
  Serious: Yes (Other)
  Sender: FDA-Public Use
  Company Number: PHHY2019GB183771

PATIENT
  Age: 56 Year
  Sex: Male

DRUGS (6)
  1. DABRAFENIB [Suspect]
     Active Substance: DABRAFENIB
     Dosage: 75 MG, UNK
     Route: 065
     Dates: start: 201907, end: 20190730
  2. TRAMETINIB [Suspect]
     Active Substance: TRAMETINIB
     Dosage: 1.5 MG, UNK
     Route: 065
     Dates: start: 201906
  3. DABRAFENIB [Suspect]
     Active Substance: DABRAFENIB
     Dosage: 100 MG, QD
     Route: 065
     Dates: start: 201906
  4. DABRAFENIB [Suspect]
     Active Substance: DABRAFENIB
     Indication: METASTATIC MALIGNANT MELANOMA
     Dosage: 150 MG, BID
     Route: 065
     Dates: start: 201904
  5. TRAMETINIB [Suspect]
     Active Substance: TRAMETINIB
     Indication: METASTATIC MALIGNANT MELANOMA
     Dosage: 2 MG, QD
     Route: 065
     Dates: start: 201904
  6. TRAMETINIB [Suspect]
     Active Substance: TRAMETINIB
     Dosage: 1 MG, UNK
     Route: 065
     Dates: start: 201907, end: 20190730

REACTIONS (10)
  - Eye swelling [Unknown]
  - White blood cell count decreased [Unknown]
  - Ocular hyperaemia [Unknown]
  - Uveitis [Unknown]
  - Inflammation [Unknown]
  - Pyrexia [Unknown]
  - Chills [Unknown]
  - Rash [Unknown]
  - Sepsis syndrome [Unknown]
  - Eye disorder [Recovered/Resolved]

NARRATIVE: CASE EVENT DATE: 20190409
